FAERS Safety Report 13522722 (Version 7)
Quarter: 2018Q2

REPORT INFORMATION
  Report Type: Report from Study
  Country: US (occurrence: US)
  Receive Date: 20170508
  Receipt Date: 20180627
  Transmission Date: 20180711
  Serious: Yes (Other)
  Sender: FDA-Public Use
  Company Number: US-JNJFOC-20170504545

PATIENT
  Age: 74 Year
  Sex: Male

DRUGS (14)
  1. HCTZ [Concomitant]
     Active Substance: HYDROCHLOROTHIAZIDE
  2. LOSARTAN. [Concomitant]
     Active Substance: LOSARTAN
  3. IMBRUVICA [Suspect]
     Active Substance: IBRUTINIB
     Indication: CHRONIC LYMPHOCYTIC LEUKAEMIA
     Route: 048
     Dates: start: 20150316
  4. FINASTERIDE. [Concomitant]
     Active Substance: FINASTERIDE
  5. OCEAN SALINE NASAL SPRAY [Concomitant]
     Active Substance: SODIUM CHLORIDE
     Route: 045
  6. IMBRUVICA [Suspect]
     Active Substance: IBRUTINIB
     Indication: CHRONIC LYMPHOCYTIC LEUKAEMIA
     Route: 048
     Dates: start: 20150323, end: 20180520
  7. ALLOPURINOL. [Concomitant]
     Active Substance: ALLOPURINOL
  8. ZOCOR [Concomitant]
     Active Substance: SIMVASTATIN
  9. BENZONATATE. [Concomitant]
     Active Substance: BENZONATATE
  10. CYANOCOBALAMIN. [Concomitant]
     Active Substance: CYANOCOBALAMIN
  11. POTASSIUM [Concomitant]
     Active Substance: POTASSIUM
  12. IMBRUVICA [Suspect]
     Active Substance: IBRUTINIB
     Indication: CHRONIC LYMPHOCYTIC LEUKAEMIA
     Route: 048
     Dates: start: 20161202
  13. IMMUNOGLOBULIN HUMAN NORMAL [Suspect]
     Active Substance: HUMAN IMMUNOGLOBULIN G
     Indication: PRODUCT USED FOR UNKNOWN INDICATION
     Route: 065
  14. ACYCLOVIR. [Concomitant]
     Active Substance: ACYCLOVIR

REACTIONS (17)
  - Blood immunoglobulin G decreased [Recovering/Resolving]
  - Urinary retention postoperative [Unknown]
  - Blood immunoglobulin M decreased [Not Recovered/Not Resolved]
  - Post procedural haematuria [Recovered/Resolved]
  - Device occlusion [Unknown]
  - Benign prostatic hyperplasia [Unknown]
  - Post procedural haemorrhage [Unknown]
  - Hair texture abnormal [Unknown]
  - Blood immunoglobulin A decreased [Not Recovered/Not Resolved]
  - Drug dose omission [Unknown]
  - Off label use [Unknown]
  - Malaise [Not Recovered/Not Resolved]
  - Blood pressure increased [Unknown]
  - Impaired healing [Unknown]
  - Urethral stenosis [Unknown]
  - Device leakage [Unknown]
  - Product use issue [Unknown]

NARRATIVE: CASE EVENT DATE: 20150316
